FAERS Safety Report 9355637 (Version 1)
Quarter: 2013Q2

REPORT INFORMATION
  Report Type: Spontaneous
  Country: US (occurrence: None)
  Receive Date: 20130618
  Receipt Date: 20130618
  Transmission Date: 20140414
  Serious: Yes (Other)
  Sender: FDA-Public Use
  Company Number: None

PATIENT
  Age: 58 Year
  Sex: Female
  Weight: 90.27 kg

DRUGS (12)
  1. GUAIFENESIN [Suspect]
     Indication: ASTHMA
     Dosage: WITH A GLASS OF WATER
     Route: 048
     Dates: start: 20130603, end: 20130604
  2. ADVAIR [Concomitant]
  3. FLUTICASONE AQ INHALER [Concomitant]
  4. FLUOXETINE [Concomitant]
  5. SIMCOR [Concomitant]
  6. MULTI-VITAMIN [Concomitant]
  7. GARLIC CAPSULES [Concomitant]
  8. CHROMIUM PICOLONATE [Concomitant]
  9. CALCIUM-MAGNESIUM [Concomitant]
  10. OIL OF EVENING PRIMROSE [Concomitant]
  11. MILK THISTLE [Concomitant]
  12. VITD [Concomitant]

REACTIONS (3)
  - Insomnia [None]
  - Product quality issue [None]
  - Product substitution issue [None]
